FAERS Safety Report 17998300 (Version 2)
Quarter: 2020Q3

REPORT INFORMATION
  Report Type: Report from Study
  Country: None (occurrence: CO)
  Receive Date: 20200708
  Receipt Date: 20200729
  Transmission Date: 20201103
  Serious: Yes (Hospitalization, Other)
  Sender: FDA-Public Use
  Company Number: CO-ABBVIE-20K-036-3474559-00

PATIENT
  Age: 54 Year
  Sex: Female
  Weight: 83 kg

DRUGS (1)
  1. HUMIRA [Suspect]
     Active Substance: ADALIMUMAB
     Indication: HIDRADENITIS
     Route: 058
     Dates: start: 20161020

REACTIONS (7)
  - Gastritis [Recovered/Resolved]
  - Abdominal pain [Recovered/Resolved]
  - Abdominal adhesions [Recovered/Resolved]
  - Intestinal obstruction [Recovered/Resolved]
  - Dizziness [Recovered/Resolved]
  - Vomiting [Recovered/Resolved]
  - Gastrointestinal injury [Recovered/Resolved]

NARRATIVE: CASE EVENT DATE: 201810
